FAERS Safety Report 7498298-9 (Version None)
Quarter: 2011Q2

REPORT INFORMATION
  Report Type: 
  Country: None (occurrence: None)
  Receive Date: 20110524
  Receipt Date: 20110503
  Transmission Date: 20111010
  Serious: Yes (Hospitalization)
  Sender: FDA-Public Use
  Company Number: US-BAYER-200943676NA

PATIENT
  Age: 40 Year
  Sex: Female
  Weight: 53 kg

DRUGS (7)
  1. LOVAZA [Concomitant]
     Dosage: UNK
     Dates: start: 20070101
  2. YASMIN [Suspect]
     Indication: PRODUCT USED FOR UNKNOWN INDICATION
  3. MULTI-VITAMIN [Concomitant]
     Dosage: UNK
     Dates: start: 20070101
  4. YAZ [Suspect]
     Indication: PREMENSTRUAL SYNDROME
     Dosage: UNK UNK, QD
     Dates: start: 20080825, end: 20090205
  5. VITAMIN D [Concomitant]
     Dosage: UNK
     Dates: start: 20070101
  6. YAZ [Suspect]
     Indication: DYSFUNCTIONAL UTERINE BLEEDING
  7. IBUPROFEN [Concomitant]
     Dosage: UNK
     Dates: start: 20070101

REACTIONS (7)
  - DISCOMFORT [None]
  - PULMONARY EMBOLISM [None]
  - PAIN IN EXTREMITY [None]
  - DYSPNOEA [None]
  - DEEP VEIN THROMBOSIS [None]
  - PLEURITIC PAIN [None]
  - CHEST PAIN [None]
